FAERS Safety Report 5395509-0 (Version None)
Quarter: 2007Q3

REPORT INFORMATION
  Report Type: 
  Country: None (occurrence: None)
  Receive Date: 20070724
  Receipt Date: 20070712
  Transmission Date: 20080115
  Serious: Yes (Hospitalization, Other)
  Sender: FDA-Public Use
  Company Number: US-KINGPHARMUSA00001-K200700829

PATIENT

DRUGS (3)
  1. SKELAXIN [Suspect]
     Indication: PAIN
     Route: 048
     Dates: start: 20070628, end: 20070628
  2. SKELAXIN [Suspect]
     Indication: BONE DISORDER
  3. LORTAB [Concomitant]
     Indication: PAIN

REACTIONS (11)
  - AGGRESSION [None]
  - BELLIGERENCE [None]
  - CARDIAC ARREST [None]
  - COORDINATION ABNORMAL [None]
  - DYSKINESIA [None]
  - INTENTIONAL OVERDOSE [None]
  - LOSS OF CONTROL OF LEGS [None]
  - MANIA [None]
  - MECHANICAL VENTILATION [None]
  - MUSCLE TWITCHING [None]
  - PYREXIA [None]
